FAERS Safety Report 4378030-8 (Version None)
Quarter: 2004Q2

REPORT INFORMATION
  Report Type: 
  Country: None (occurrence: None)
  Receive Date: 20040608
  Receipt Date: 20040527
  Transmission Date: 20050107
  Serious: Yes (Hospitalization)
  Sender: FDA-Public Use
  Company Number: 04P-167-0262372-00

PATIENT
  Age: 68 Year
  Sex: Female
  Weight: 80 kg

DRUGS (3)
  1. HUMIRA 40 MG/  0.8 ML PRE-FILLED SYRINGE (HUMIRA) (ADALIMUMBA) [Suspect]
     Indication: RHEUMATOID ARTHRITIS
     Dosage: 40 MG, 1 IN 2 WK
     Dates: start: 20031115, end: 20031201
  2. PREDNISOLONE [Concomitant]
  3. ALENDRONATE SODIUM [Concomitant]

REACTIONS (2)
  - OESOPHAGEAL DISORDER [None]
  - SWELLING [None]
